FAERS Safety Report 10528423 (Version 2)
Quarter: 2014Q4

REPORT INFORMATION
  Report Type: Spontaneous
  Country: SE (occurrence: SE)
  Receive Date: 20141020
  Receipt Date: 20141229
  Transmission Date: 20150528
  Serious: Yes (Hospitalization)
  Sender: FDA-Public Use
  Company Number: SE-TEVA-514847ISR

PATIENT
  Age: 39 Year
  Sex: Female

DRUGS (6)
  1. IKTORIVIL 0,5 MG TABLET [Suspect]
     Active Substance: CLONAZEPAM
     Dosage: 1.5 MILLIGRAM DAILY;
     Route: 048
     Dates: end: 201306
  2. IKTORIVIL 0,5 MG TABLET [Suspect]
     Active Substance: CLONAZEPAM
     Dosage: FOUR TO SIX TABLETS DAILY FOR THE LAST FEW DAYS
     Route: 048
     Dates: end: 201306
  3. IKTORIVIL 0,5 MG TABLET [Suspect]
     Active Substance: CLONAZEPAM
     Dosage: A HANDFUL OF 10? ACCORDING TO THE REPORT
     Route: 048
     Dates: start: 20130625, end: 20130625
  4. CIPRALEX [Concomitant]
     Active Substance: ESCITALOPRAM OXALATE
  5. OXASCAND [Suspect]
     Active Substance: OXAZEPAM
     Route: 048
     Dates: start: 20130625, end: 20130625
  6. LEVAXIN 100 MIKROGRAM TABLET [Concomitant]

REACTIONS (1)
  - Toxicity to various agents [Recovered/Resolved]

NARRATIVE: CASE EVENT DATE: 20130625
